FAERS Safety Report 26153386 (Version 1)
Quarter: 2025Q4

REPORT INFORMATION
  Report Type: Spontaneous
  Country: US (occurrence: US)
  Receive Date: 20251214
  Receipt Date: 20251214
  Transmission Date: 20260117
  Serious: Yes (Hospitalization, Other)
  Sender: UNICHEM
  Company Number: US-UNICHEM LABORATORIES LIMITED-UNI-2025-US-004119

PATIENT

DRUGS (4)
  1. BACLOFEN [Suspect]
     Active Substance: BACLOFEN
     Indication: Product used for unknown indication
     Dosage: 10 MILLIGRAM, TID
     Route: 065
  2. BACLOFEN [Suspect]
     Active Substance: BACLOFEN
     Dosage: 20 MILLIGRAM, TID
     Route: 065
  3. BACLOFEN [Suspect]
     Active Substance: BACLOFEN
     Dosage: 20 MILLIGRAM, TID
     Route: 065
  4. RIVAROXABAN [Concomitant]
     Active Substance: RIVAROXABAN
     Indication: Atrial fibrillation
     Dosage: UNK
     Route: 065

REACTIONS (2)
  - Rebound psychosis [Unknown]
  - Hallucinations, mixed [Recovering/Resolving]
